FAERS Safety Report 15450833 (Version 3)
Quarter: 2019Q1

REPORT INFORMATION
  Report Type: Spontaneous
  Country: DE (occurrence: DE)
  Receive Date: 20181001
  Receipt Date: 20190308
  Transmission Date: 20190417
  Serious: Yes (Other)
  Sender: FDA-Public Use
  Company Number: DE-BAYER-DE-2007-008613

PATIENT
  Age: 47 Year
  Sex: Female

DRUGS (7)
  1. BISOPROLOL FUMARATE. [Concomitant]
     Active Substance: BISOPROLOL FUMARATE
  2. PANTOPRAZOLE SODIUM. [Concomitant]
     Active Substance: PANTOPRAZOLE SODIUM
  3. BACLOFEN. [Concomitant]
     Active Substance: BACLOFEN
  4. OSSOFORTIN [CALCIUM CARBONATE;COLECALCIFEROL] [Concomitant]
  5. BETAFERON [Suspect]
     Active Substance: INTERFERON BETA-1B
     Dosage: UNK, UNK
     Route: 058
     Dates: start: 200608
  6. METHIONINE [Concomitant]
     Active Substance: METHIONINE
  7. TIZANIDINE HYDROCHLORIDE. [Concomitant]
     Active Substance: TIZANIDINE HYDROCHLORIDE

REACTIONS (5)
  - Aspartate aminotransferase increased [Unknown]
  - Thrombosis [Unknown]
  - Soft tissue necrosis [Unknown]
  - Alanine aminotransferase increased [Unknown]
  - Gamma-glutamyltransferase increased [Unknown]
